FAERS Safety Report 5610454-0 (Version None)
Quarter: 2008Q1

REPORT INFORMATION
  Report Type: 
  Country: None (occurrence: None)
  Receive Date: 20080128
  Receipt Date: 20080115
  Transmission Date: 20080703
  Serious: Yes (Hospitalization)
  Sender: FDA-Public Use
  Company Number: 231428J07USA

PATIENT
  Age: 60 Year
  Sex: Female
  Weight: 83.9154 kg

DRUGS (9)
  1. REBIF [Suspect]
     Indication: MULTIPLE SCLEROSIS
     Dosage: 44 MCG, 3 IN 1 WEEKS, SUBCUTANEOUS, 44 MCG, 3 IN 1 WEEKS, SUBCUTANEOUS
     Route: 058
     Dates: start: 20040130, end: 20050320
  2. REBIF [Suspect]
     Indication: MULTIPLE SCLEROSIS
     Dosage: 44 MCG, 3 IN 1 WEEKS, SUBCUTANEOUS, 44 MCG, 3 IN 1 WEEKS, SUBCUTANEOUS
     Route: 058
     Dates: start: 20071015
  3. CYMBALTA [Concomitant]
  4. WELLBUTRIN [Concomitant]
  5. PROPRANOLOL [Concomitant]
  6. TRAZODONE HCL [Concomitant]
  7. AMBIEN [Concomitant]
  8. UROXATRAL [Concomitant]
  9. IMITREX [Concomitant]

REACTIONS (2)
  - CHOLELITHIASIS [None]
  - OSTEOARTHRITIS [None]
